FAERS Safety Report 7948694-8 (Version None)
Quarter: 2011Q4

REPORT INFORMATION
  Report Type: 
  Country: None (occurrence: None)
  Receive Date: 20111130
  Receipt Date: 20111130
  Transmission Date: 20120403
  Serious: Yes (Other)
  Sender: FDA-Public Use
  Company Number: None

PATIENT
  Age: 8 Year
  Sex: Male
  Weight: 30 kg

DRUGS (2)
  1. SEROQUEL [Suspect]
     Indication: AFFECTIVE DISORDER
     Dosage: 25 MG
     Route: 048
     Dates: start: 20111004, end: 20111015
  2. CITALOPRAM [Concomitant]
     Indication: ANXIETY
     Dosage: 10 MG
     Dates: start: 20111004, end: 20111019

REACTIONS (2)
  - CHEST PAIN [None]
  - ELECTROCARDIOGRAM QT PROLONGED [None]
